FAERS Safety Report 14258339 (Version 7)
Quarter: 2020Q1

REPORT INFORMATION
  Report Type: Spontaneous
  Country: CA (occurrence: CA)
  Receive Date: 20171207
  Receipt Date: 20200325
  Transmission Date: 20200409
  Serious: Yes (Other)
  Sender: FDA-Public Use
  Company Number: CA-ROCHE-2036036

PATIENT
  Age: 11 Year
  Sex: Male

DRUGS (11)
  1. XOLAIR [Suspect]
     Active Substance: OMALIZUMAB
     Route: 058
     Dates: start: 20200304
  2. APO-DOXEPIN [Concomitant]
     Active Substance: DOXEPIN
     Indication: ECZEMA
     Route: 048
     Dates: start: 2011
  3. FLOVENT [Concomitant]
     Active Substance: FLUTICASONE PROPIONATE
     Indication: ASTHMA
     Route: 055
     Dates: start: 2011
  4. LORATADINE. [Concomitant]
     Active Substance: LORATADINE
     Indication: ECZEMA
     Route: 048
     Dates: start: 2014
  5. XOLAIR [Suspect]
     Active Substance: OMALIZUMAB
     Indication: ASTHMA
     Route: 058
     Dates: start: 20171109
  6. NASONEX [Concomitant]
     Active Substance: MOMETASONE FUROATE
     Indication: NASAL CONGESTION
     Route: 045
  7. XOLAIR [Suspect]
     Active Substance: OMALIZUMAB
     Route: 058
     Dates: start: 20180918
  8. XOLAIR [Suspect]
     Active Substance: OMALIZUMAB
     Route: 058
     Dates: start: 20171123
  9. VENTOLIN [Concomitant]
     Active Substance: ALBUTEROL SULFATE
     Indication: ASTHMA
     Route: 055
     Dates: start: 2011
  10. HYDROXYZINE [Concomitant]
     Active Substance: HYDROXYZINE HYDROCHLORIDE
     Indication: ECZEMA
     Route: 061
  11. XOLAIR [Suspect]
     Active Substance: OMALIZUMAB
     Route: 058
     Dates: start: 20180529

REACTIONS (11)
  - Skin lesion [Unknown]
  - Urticaria [Unknown]
  - Injection site erythema [Unknown]
  - Injection site pain [Recovered/Resolved]
  - Blood pressure decreased [Unknown]
  - Asthma [Unknown]
  - Nasopharyngitis [Unknown]
  - Eczema [Recovering/Resolving]
  - Dyspnoea [Unknown]
  - Bronchitis [Unknown]
  - Wheezing [Unknown]

NARRATIVE: CASE EVENT DATE: 20171109
